FAERS Safety Report 24810252 (Version 1)
Quarter: 2025Q1

REPORT INFORMATION
  Report Type: Spontaneous
  Country: FR (occurrence: None)
  Receive Date: 20250103
  Receipt Date: 20250103
  Transmission Date: 20250409
  Serious: Yes (Other)
  Sender: FDA-CTU
  Company Number: None

PATIENT
  Age: 37 Year
  Sex: Male
  Weight: 76 kg

DRUGS (7)
  1. VENLAFAXINE HYDROCHLORIDE [Suspect]
     Active Substance: VENLAFAXINE HYDROCHLORIDE
     Indication: Depression
     Dosage: DAILY ORAL
     Route: 048
     Dates: start: 20240531, end: 20240817
  2. Vortioxetine (Brintellix), 10 mg daily [Concomitant]
  3. Vitamin D, 2000 IU daily [Concomitant]
  4. ZINC [Concomitant]
     Active Substance: ZINC
  5. MultiVitamis [Concomitant]
  6. OMEGA 3 [Concomitant]
     Active Substance: CAPSAICIN
  7. MAGNESIUM [Concomitant]
     Active Substance: MAGNESIUM

REACTIONS (4)
  - Withdrawal syndrome [None]
  - Emotional disorder [None]
  - Therapy interrupted [None]
  - Anxiety [None]

NARRATIVE: CASE EVENT DATE: 20240817
